FAERS Safety Report 7931716-8 (Version None)
Quarter: 2011Q4

REPORT INFORMATION
  Report Type: 
  Country: None (occurrence: None)
  Receive Date: 20111121
  Receipt Date: 20111114
  Transmission Date: 20120403
  Serious: Yes (Other)
  Sender: FDA-Public Use
  Company Number: PHEH2010US01812

PATIENT
  Sex: Female

DRUGS (33)
  1. FOSAMAX [Suspect]
     Indication: BREAST CANCER
     Dates: end: 20080101
  2. ACETAMINOPHEN [Concomitant]
  3. LOVAZA [Concomitant]
  4. MAALOX                                  /USA/ [Concomitant]
     Dosage: 30 ML, Q4H, PRN
     Route: 048
  5. NITROGLYCERIN [Concomitant]
  6. ZOCOR [Concomitant]
     Dosage: 40 MG, QHS
     Route: 048
  7. MULTI-VITAMIN [Concomitant]
  8. LISINOPRIL [Concomitant]
  9. CYMBALTA [Concomitant]
  10. ASCORBIC ACID [Concomitant]
  11. PROVENTIL [Concomitant]
  12. ROCEPHIN [Concomitant]
     Dosage: 1 G, QD
     Route: 042
  13. AZITHROMYCIN [Concomitant]
     Dosage: 500 MG, QD
     Route: 042
  14. ZOMETA [Suspect]
     Indication: BREAST CANCER
     Dates: start: 20051201, end: 20080401
  15. LIPITOR [Concomitant]
  16. CARVEDILOL [Concomitant]
  17. ASPIRIN [Concomitant]
  18. CYTOXAN [Concomitant]
  19. ACETAMINOPHEN [Concomitant]
     Dosage: 650 MG, Q4H, PRN
  20. MS CONTIN [Concomitant]
     Dosage: 60 MG, BID
     Route: 048
  21. DILAUDID [Concomitant]
     Dosage: 60 MG, SIX TIMES A DAY
  22. CLONIDINE [Concomitant]
  23. AROMASIN [Concomitant]
  24. PLAVIX [Concomitant]
  25. ADRIAMYCIN PFS [Concomitant]
  26. REGLAN [Concomitant]
  27. CALCIUM [Concomitant]
  28. LOVENOX [Concomitant]
     Dosage: 40 MG, QD
     Route: 058
  29. ARIMIDEX [Concomitant]
  30. OXYCODONE HCL [Concomitant]
  31. CITALOPRAM HYDROBROMIDE [Concomitant]
  32. ZEGERID [Concomitant]
     Dosage: 40 MG, QD
  33. HYDROCHLOROTHIAZIDE [Concomitant]

REACTIONS (66)
  - CORONARY ARTERY DISEASE [None]
  - DEPRESSION [None]
  - PAIN [None]
  - HYPOTENSION [None]
  - HYPERALBUMINAEMIA [None]
  - AORTIC ARTERIOSCLEROSIS [None]
  - MYOCARDIAL INFARCTION [None]
  - DYSPNOEA [None]
  - OSTEONECROSIS OF JAW [None]
  - ASTHMA [None]
  - CHEST PAIN [None]
  - NEOPLASM MALIGNANT [None]
  - INJURY [None]
  - BREATH ODOUR [None]
  - EXPOSED BONE IN JAW [None]
  - GASTRITIS [None]
  - HYPERCALCAEMIA [None]
  - METAPLASIA [None]
  - HYPOKINESIA [None]
  - GASTROOESOPHAGEAL REFLUX DISEASE [None]
  - LYMPHADENOPATHY [None]
  - PHAEOCHROMOCYTOMA [None]
  - HYPERLIPIDAEMIA [None]
  - DUODENITIS [None]
  - NAUSEA [None]
  - FATIGUE [None]
  - OSTEOPOROSIS [None]
  - ATELECTASIS [None]
  - ANXIETY [None]
  - TOOTH LOSS [None]
  - OROANTRAL FISTULA [None]
  - HYPERCHOLESTEROLAEMIA [None]
  - DYSLIPIDAEMIA [None]
  - SINUS BRADYCARDIA [None]
  - ADRENAL NEOPLASM [None]
  - TUBERCULOSIS [None]
  - NEUROPATHY PERIPHERAL [None]
  - OSTEOMYELITIS [None]
  - HYPERTENSION [None]
  - DIARRHOEA [None]
  - HIATUS HERNIA [None]
  - MUSCULOSKELETAL DISCOMFORT [None]
  - ELECTROCARDIOGRAM T WAVE INVERSION [None]
  - INTERVERTEBRAL DISC DEGENERATION [None]
  - NEOPLASM PROGRESSION [None]
  - PATHOLOGICAL FRACTURE [None]
  - ABDOMINAL PAIN [None]
  - PELVIC PAIN [None]
  - THROMBOCYTOPENIA [None]
  - CONSTIPATION [None]
  - LEUKOCYTOSIS [None]
  - PNEUMONIA [None]
  - CARDIAC FAILURE CONGESTIVE [None]
  - LOOSE TOOTH [None]
  - LEFT VENTRICULAR HYPERTROPHY [None]
  - PLEURAL EFFUSION [None]
  - LUNG INFILTRATION [None]
  - GALLBLADDER DISORDER [None]
  - GINGIVAL INFECTION [None]
  - LUNG HYPERINFLATION [None]
  - NASAL SEPTUM DEVIATION [None]
  - ANHEDONIA [None]
  - CHRONIC OBSTRUCTIVE PULMONARY DISEASE [None]
  - MACROCYTOSIS [None]
  - HEPATIC STEATOSIS [None]
  - AORTIC ANEURYSM [None]
